FAERS Safety Report 13700746 (Version 1)
Quarter: 2017Q2

REPORT INFORMATION
  Report Type: Spontaneous
  Country: US (occurrence: US)
  Receive Date: 20170628
  Receipt Date: 20170628
  Transmission Date: 20170830
  Serious: No
  Sender: FDA-Public Use
  Company Number: None

PATIENT
  Age: 70 Year
  Sex: Male

DRUGS (1)
  1. EPCLUSA [Suspect]
     Active Substance: SOFOSBUVIR\VELPATASVIR
     Route: 048
     Dates: start: 20170608

REACTIONS (5)
  - Urine abnormality [None]
  - Dysuria [None]
  - Myalgia [None]
  - Walking aid user [None]
  - Muscle spasms [None]

NARRATIVE: CASE EVENT DATE: 20170608
